FAERS Safety Report 13130501 (Version 1)
Quarter: 2017Q1

REPORT INFORMATION
  Report Type: Spontaneous
  Country: US (occurrence: US)
  Receive Date: 20170119
  Receipt Date: 20170119
  Transmission Date: 20170428
  Serious: No
  Sender: FDA-Public Use
  Company Number: US-ASTRAZENECA-2017SE03512

PATIENT
  Age: 65 Year
  Sex: Female
  Weight: 62.6 kg

DRUGS (14)
  1. GENERIC ESOMEPRAZOLE [Suspect]
     Active Substance: ESOMEPRAZOLE
     Indication: OESOPHAGEAL DISORDER
     Dosage: NEXIUM, 40 MG DAILY
     Route: 048
     Dates: start: 2010, end: 2016
  2. GENERIC ESOMEPRAZOLE [Suspect]
     Active Substance: ESOMEPRAZOLE
     Indication: OESOPHAGEAL DISORDER
     Dosage: GENERIC ESOMEPRAZOLE
     Route: 048
     Dates: start: 2016, end: 201610
  3. HCTZ [Concomitant]
     Active Substance: HYDROCHLOROTHIAZIDE
     Indication: HYPERTENSION
     Route: 048
  4. LOMOTIL [Concomitant]
     Active Substance: ATROPINE SULFATE\DIPHENOXYLATE HYDROCHLORIDE
     Indication: DIARRHOEA
     Dosage: AS REQUIRED
     Route: 048
     Dates: start: 2003
  5. SYNTHROID [Concomitant]
     Active Substance: LEVOTHYROXINE SODIUM
     Indication: THYROID OPERATION
     Route: 048
     Dates: start: 2001
  6. GENERIC ESOMEPRAZOLE [Suspect]
     Active Substance: ESOMEPRAZOLE
     Indication: GASTROOESOPHAGEAL REFLUX DISEASE
     Dosage: NEXIUM, 40 MG DAILY
     Route: 048
     Dates: start: 2010, end: 2016
  7. VALSARTAN HCTZ [Concomitant]
     Active Substance: HYDROCHLOROTHIAZIDE\VALSARTAN
     Indication: HYPERTENSION
     Route: 048
  8. ALPRAZOLAM. [Concomitant]
     Active Substance: ALPRAZOLAM
     Indication: ANXIETY
     Dosage: 0.5MG AS REQUIRED
     Route: 048
  9. DOXEPIN [Concomitant]
     Active Substance: DOXEPIN
     Indication: SLEEP DISORDER
     Dosage: 100.0MG AS REQUIRED
     Route: 048
  10. HYOSCYAMINE. [Concomitant]
     Active Substance: HYOSCYAMINE
     Indication: ABDOMINAL PAIN
     Dosage: 0.125MG AS REQUIRED
     Route: 060
  11. KLOR-CON [Concomitant]
     Active Substance: POTASSIUM CHLORIDE
     Indication: HYPOKALAEMIC SYNDROME
     Route: 048
     Dates: start: 2000
  12. BUPROPION. [Concomitant]
     Active Substance: BUPROPION
     Indication: DEPRESSION
     Route: 048
  13. GENERIC ESOMEPRAZOLE [Suspect]
     Active Substance: ESOMEPRAZOLE
     Indication: GASTROOESOPHAGEAL REFLUX DISEASE
     Dosage: GENERIC ESOMEPRAZOLE
     Route: 048
     Dates: start: 2016, end: 201610
  14. HYOSCYAMINE. [Concomitant]
     Active Substance: HYOSCYAMINE
     Indication: DIARRHOEA
     Dosage: 0.125MG AS REQUIRED
     Route: 060

REACTIONS (3)
  - Nausea [Recovered/Resolved]
  - Malaise [Recovered/Resolved]
  - Product substitution issue [Unknown]

NARRATIVE: CASE EVENT DATE: 2016
